FAERS Safety Report 7700573-7 (Version None)
Quarter: 2011Q3

REPORT INFORMATION
  Report Type: 
  Country: None (occurrence: None)
  Receive Date: 20110822
  Receipt Date: 20110809
  Transmission Date: 20111222
  Serious: Yes (Other)
  Sender: FDA-Public Use
  Company Number: JP-UCBSA-038772

PATIENT
  Sex: Male

DRUGS (5)
  1. FLUTICASONE PROPIONATE [Concomitant]
     Dosage: FORM : INHALATION
     Route: 055
  2. PATANOL [Concomitant]
     Indication: CONJUNCTIVITIS
     Dosage: DOSAGE FORM : DRPP
     Route: 031
  3. ALLERMIST [Concomitant]
     Indication: NASAL CONGESTION
     Route: 045
  4. SINGULAIR [Concomitant]
     Indication: ASTHMA
     Dosage: FORM: POR
     Route: 048
  5. XYZAL [Suspect]
     Indication: NASAL CONGESTION
     Dosage: STARTED FROM ??/MAR/2011 TO ??/???/2011, 2.5 MG ORAL TABLET 2 TIMES EVERY ONE DAY,
     Route: 048
     Dates: start: 20110601, end: 20110101

REACTIONS (1)
  - ELECTROCARDIOGRAM QT PROLONGED [None]
